FAERS Safety Report 18377074 (Version 1)
Quarter: 2020Q4

REPORT INFORMATION
  Report Type: Spontaneous
  Country: PT (occurrence: PT)
  Receive Date: 20201013
  Receipt Date: 20201013
  Transmission Date: 20210114
  Serious: Yes (Hospitalization, Other)
  Sender: FDA-Public Use
  Company Number: PT-MYLANLABS-2020M1085781

PATIENT
  Age: 73 Year
  Sex: Female

DRUGS (7)
  1. ETHAMBUTOL [Suspect]
     Active Substance: ETHAMBUTOL HYDROCHLORIDE
     Indication: MENINGOENCEPHALITIS BACTERIAL
     Dosage: UNK
     Route: 065
  2. DEXAMETHASONE. [Suspect]
     Active Substance: DEXAMETHASONE
     Indication: MENINGOENCEPHALITIS BACTERIAL
     Dosage: UNK
     Route: 065
  3. PYRAZINAMIDE. [Suspect]
     Active Substance: PYRAZINAMIDE
     Indication: MENINGOENCEPHALITIS BACTERIAL
     Dosage: UNK
     Route: 065
  4. LEVETIRACETAM. [Suspect]
     Active Substance: LEVETIRACETAM
     Indication: STATUS EPILEPTICUS
     Dosage: UNK
     Route: 065
  5. RIFAMPICIN [Suspect]
     Active Substance: RIFAMPIN
     Indication: MENINGOENCEPHALITIS BACTERIAL
     Dosage: UNK
     Route: 065
  6. ISONIAZID. [Suspect]
     Active Substance: ISONIAZID
     Indication: MENINGOENCEPHALITIS BACTERIAL
     Dosage: UNK
     Route: 065
  7. ACYCLOVIR                          /00587301/ [Concomitant]
     Active Substance: ACYCLOVIR
     Indication: MENINGOENCEPHALITIS VIRAL
     Dosage: UNK

REACTIONS (1)
  - Drug-induced liver injury [Recovered/Resolved]
